FAERS Safety Report 6588001-9 (Version None)
Quarter: 2010Q1

REPORT INFORMATION
  Report Type: 
  Country: None (occurrence: None)
  Receive Date: 20100218
  Receipt Date: 20100209
  Transmission Date: 20100710
  Serious: Yes (Other)
  Sender: FDA-Public Use
  Company Number: US-JNJFOC-20100205786

PATIENT
  Age: 12 Year
  Sex: Male

DRUGS (6)
  1. REMICADE [Suspect]
     Indication: CROHN'S DISEASE
     Dosage: STARTED 4 YEARS AGO
     Route: 042
  2. REMICADE [Suspect]
     Dosage: 2ND DOSE AFTER RESTARTED
     Route: 042
  3. PENTASA [Concomitant]
  4. ENTOCORT EC [Concomitant]
  5. BENADRYL [Concomitant]
     Indication: PREMEDICATION
  6. SOLU-MEDROL [Concomitant]
     Indication: PREMEDICATION

REACTIONS (5)
  - BACK PAIN [None]
  - DYSPNOEA [None]
  - FISTULA [None]
  - INFUSION RELATED REACTION [None]
  - RASH ERYTHEMATOUS [None]
